FAERS Safety Report 5454362-7 (Version None)
Quarter: 2007Q3

REPORT INFORMATION
  Report Type: 
  Country: None (occurrence: None)
  Receive Date: 20070917
  Receipt Date: 20070228
  Transmission Date: 20080115
  Serious: No
  Sender: FDA-Public Use
  Company Number: US-ASTRAZENECA-2006UW11859

PATIENT
  Age: 71 Year
  Sex: Male
  Weight: 100 kg

DRUGS (6)
  1. SEROQUEL [Suspect]
     Indication: BIPOLAR DISORDER
     Route: 048
     Dates: start: 20020101, end: 20050101
  2. SEROQUEL [Suspect]
     Indication: SCHIZOPHRENIA
     Route: 048
     Dates: start: 20020101, end: 20050101
  3. HALDOL [Concomitant]
     Dates: start: 20050101
  4. RISPERDAL [Concomitant]
     Dates: start: 20050101
  5. THORAZINE [Concomitant]
     Dates: start: 20020101
  6. ZYPREXA/SYMBYAX [Concomitant]
     Dates: start: 20020101

REACTIONS (3)
  - BLOOD CHOLESTEROL INCREASED [None]
  - HYPERTENSION [None]
  - TYPE 1 DIABETES MELLITUS [None]
